FAERS Safety Report 7544604-6 (Version None)
Quarter: 2011Q2

REPORT INFORMATION
  Report Type: 
  Country: None (occurrence: None)
  Receive Date: 20110614
  Receipt Date: 20110607
  Transmission Date: 20111010
  Serious: Yes (Hospitalization)
  Sender: FDA-Public Use
  Company Number: US-BIOGENIDEC-2011BI015186

PATIENT
  Age: 63 Year
  Sex: Female
  Weight: 62 kg

DRUGS (17)
  1. COLACE [Concomitant]
     Route: 048
  2. NEXIUM [Concomitant]
     Indication: GASTROOESOPHAGEAL REFLUX DISEASE
     Dates: start: 20090716
  3. CITRUCEL [Concomitant]
     Indication: CONSTIPATION
     Dates: start: 20090716
  4. CITRACAL [Concomitant]
  5. CRANBERRY [Concomitant]
     Route: 048
  6. FEXOFENADINE [Concomitant]
  7. ZANAFLEX [Concomitant]
     Indication: MUSCLE SPASTICITY
     Route: 048
     Dates: start: 20070312
  8. ADVAIR DISKUS 100/50 [Concomitant]
     Route: 055
  9. ADVIL LIQUI-GELS [Concomitant]
  10. MULTIPLE VITAMIN [Concomitant]
     Route: 048
  11. SANCTURA [Concomitant]
     Route: 048
  12. TYSABRI [Suspect]
     Indication: MULTIPLE SCLEROSIS
     Route: 042
     Dates: start: 20070613
  13. CALCIUM CARBONATE [Concomitant]
     Route: 048
  14. SINGULAIR [Concomitant]
     Route: 048
  15. ADVAIR DISKUS 100/50 [Concomitant]
     Route: 055
  16. BONIVA [Concomitant]
     Indication: OSTEOPOROSIS
     Dates: start: 20090716
  17. TROSPIUM CHLORIDE [Concomitant]
     Indication: NEUROGENIC BLADDER
     Dates: start: 20101011

REACTIONS (5)
  - ADENOCARCINOMA [None]
  - PNEUMOTHORAX [None]
  - LUNG ADENOCARCINOMA [None]
  - BLOOD MAGNESIUM DECREASED [None]
  - POST PROCEDURAL COMPLICATION [None]
